FAERS Safety Report 5777098-1 (Version None)
Quarter: 2008Q2

REPORT INFORMATION
  Report Type: 
  Country: None (occurrence: None)
  Receive Date: 20080617
  Receipt Date: 20080617
  Transmission Date: 20081010
  Serious: Yes (Other)
  Sender: FDA-Public Use
  Company Number: None

PATIENT
  Age: 48 Year
  Sex: Female

DRUGS (7)
  1. GEODON [Suspect]
     Indication: ANXIETY
     Dosage: 1 DOSE PO ON 5/8, 1 DOSE ON 5/12
     Route: 048
     Dates: start: 20080508
  2. GEODON [Suspect]
     Indication: SOMNOLENCE
     Dosage: 1 DOSE PO ON 5/8, 1 DOSE ON 5/12
     Route: 048
     Dates: start: 20080508
  3. GEODON [Suspect]
     Indication: ANXIETY
     Dosage: 1 DOSE PO ON 5/8, 1 DOSE ON 5/12
     Route: 048
     Dates: start: 20080512
  4. GEODON [Suspect]
     Indication: SOMNOLENCE
     Dosage: 1 DOSE PO ON 5/8, 1 DOSE ON 5/12
     Route: 048
     Dates: start: 20080512
  5. CLONIDINE [Concomitant]
  6. CLONAPINE [Concomitant]
  7. METHADON HCL TAB [Concomitant]

REACTIONS (2)
  - SIMILAR REACTION ON PREVIOUS EXPOSURE TO DRUG [None]
  - SWOLLEN TONGUE [None]
